FAERS Safety Report 25878557 (Version 2)
Quarter: 2025Q4

REPORT INFORMATION
  Report Type: Spontaneous
  Country: BR (occurrence: BR)
  Receive Date: 20251003
  Receipt Date: 20251010
  Transmission Date: 20260118
  Serious: No
  Sender: PURDUE
  Company Number: BR-NAPPMUNDI-GBR-2025-0129324

PATIENT
  Sex: Female

DRUGS (1)
  1. BUPRENORPHINE [Suspect]
     Active Substance: BUPRENORPHINE
     Indication: Pain
     Dosage: 5 MILLIGRAM
     Route: 062

REACTIONS (2)
  - Application site pruritus [Unknown]
  - Application site hypersensitivity [Unknown]
